FAERS Safety Report 14612324 (Version 1)
Quarter: 2018Q1

REPORT INFORMATION
  Report Type: Spontaneous
  Country: US (occurrence: US)
  Receive Date: 20180307
  Receipt Date: 20180307
  Transmission Date: 20180509
  Serious: No
  Sender: FDA-Public Use
  Company Number: None

PATIENT
  Age: 47 Year
  Sex: Female
  Weight: 69.75 kg

DRUGS (2)
  1. VITAMIN B12 [Concomitant]
     Active Substance: CYANOCOBALAMIN
  2. GADOBENATE DIMEGLUMINE [Suspect]
     Active Substance: GADOBENATE DIMEGLUMINE
     Indication: SCAN WITH CONTRAST
     Route: 042
     Dates: start: 20180307, end: 20180307

REACTIONS (3)
  - Tachycardia [None]
  - Palpitations [None]
  - Tremor [None]

NARRATIVE: CASE EVENT DATE: 20180307
